FAERS Safety Report 23243436 (Version 1)
Quarter: 2023Q4

REPORT INFORMATION
  Report Type: Spontaneous
  Country: US (occurrence: US)
  Receive Date: 20231130
  Receipt Date: 20231130
  Transmission Date: 20240110
  Serious: No
  Sender: FDA-Public Use
  Company Number: US-STRIDES ARCOLAB LIMITED-2023SP017124

PATIENT
  Age: 28 Year
  Sex: Female

DRUGS (4)
  1. PREDNISOLONE [Suspect]
     Active Substance: PREDNISOLONE
     Indication: Asthma
     Dosage: UNK, DAILY
     Route: 048
  2. DUPILUMAB [Concomitant]
     Active Substance: DUPILUMAB
     Indication: Asthma
     Dosage: UNK
     Route: 065
     Dates: start: 202105
  3. HYDROXYUREA [Concomitant]
     Active Substance: HYDROXYUREA
     Indication: Eosinophilia
     Dosage: UNK
     Route: 065
  4. HYDROXYUREA [Concomitant]
     Active Substance: HYDROXYUREA
     Indication: Condition aggravated

REACTIONS (1)
  - Myopathy [Not Recovered/Not Resolved]
